FAERS Safety Report 18338735 (Version 1)
Quarter: 2020Q4

REPORT INFORMATION
  Report Type: Spontaneous
  Country: US (occurrence: US)
  Receive Date: 20201002
  Receipt Date: 20201002
  Transmission Date: 20210113
  Serious: No
  Sender: FDA-Public Use
  Company Number: US-SAREPTA THERAPEUTICS INC.-SRP2020-000788

PATIENT
  Age: 14 Year
  Sex: Male
  Weight: 30.9 kg

DRUGS (6)
  1. DEFLAZACORTE [Concomitant]
     Active Substance: DEFLAZACORT
     Indication: DUCHENNE MUSCULAR DYSTROPHY
  2. VITAMIN D3 [Concomitant]
     Active Substance: CHOLECALCIFEROL
     Indication: PROPHYLAXIS
     Dosage: UNK
  3. DEFLAZACORTE [Concomitant]
     Active Substance: DEFLAZACORT
     Indication: STEROID THERAPY
     Dosage: 22 MG, QD
  4. LISINOPRIL. [Concomitant]
     Active Substance: LISINOPRIL
     Indication: CARDIOVASCULAR EVENT PROPHYLAXIS
     Dosage: UNK
  5. EXONDYS 51 [Suspect]
     Active Substance: ETEPLIRSEN
     Indication: DUCHENNE MUSCULAR DYSTROPHY
     Dosage: 900 MG, WEEKLY
     Route: 042
     Dates: start: 2016, end: 20200609
  6. FLUOXETINE [Concomitant]
     Active Substance: FLUOXETINE HYDROCHLORIDE
     Indication: ANXIETY
     Dosage: UNK

REACTIONS (5)
  - Throat irritation [Recovered/Resolved]
  - Incorrect dose administered [Unknown]
  - Heart rate increased [Recovered/Resolved]
  - Anxiety [Recovered/Resolved]
  - Cough [Recovered/Resolved]

NARRATIVE: CASE EVENT DATE: 20200609
